FAERS Safety Report 10072557 (Version 3)
Quarter: 2014Q2

REPORT INFORMATION
  Report Type: Spontaneous
  Country: JP (occurrence: JP)
  Receive Date: 20140411
  Receipt Date: 20140527
  Transmission Date: 20141212
  Serious: Yes (Hospitalization)
  Sender: FDA-Public Use
  Company Number: JP-EISAI INC-E2020-13844-SPO-JP

PATIENT
  Age: 78 Year
  Sex: Male

DRUGS (2)
  1. ARICEPT [Suspect]
     Indication: PRODUCT USED FOR UNKNOWN INDICATION
     Route: 048
     Dates: start: 201103, end: 201105
  2. ARICEPT [Suspect]
     Route: 048
     Dates: start: 201105, end: 201305

REACTIONS (1)
  - Rhabdomyolysis [Recovering/Resolving]
